FAERS Safety Report 11270000 (Version 1)
Quarter: 2015Q3

REPORT INFORMATION
  Report Type: Spontaneous
  Country: US (occurrence: US)
  Receive Date: 20150714
  Receipt Date: 20150714
  Transmission Date: 20151125
  Serious: Yes (Death, Other)
  Sender: FDA-Public Use
  Company Number: US-GLAXOSMITHKLINE-US2014GSK054518

PATIENT
  Age: 56 Year
  Sex: Male
  Weight: 68.27 kg

DRUGS (23)
  1. HOMATROPIN [Concomitant]
  2. LEVOFLOXACIN. [Concomitant]
     Active Substance: LEVOFLOXACIN
  3. CURCUMIN [Concomitant]
     Active Substance: CURCUMIN
  4. BUPROPION HYDROCHLORIDE. [Concomitant]
     Active Substance: BUPROPION HYDROCHLORIDE
  5. ESCITALOPRAM OXALATE. [Concomitant]
     Active Substance: ESCITALOPRAM OXALATE
  6. INFLUENZA VACCINE [Concomitant]
     Active Substance: INFLUENZA VIRUS VACCINE
  7. RESVERATROL [Concomitant]
     Active Substance: RESVERATROL
  8. PROBIOTIC 10 [Concomitant]
  9. VOTRIENT [Suspect]
     Active Substance: PAZOPANIB HYDROCHLORIDE
     Indication: SARCOMA
     Dosage: 800 MG, QD
     Route: 048
     Dates: start: 20140923
  10. COLOSTRUM [Concomitant]
  11. DRONABINOL. [Concomitant]
     Active Substance: DRONABINOL
  12. GLUCOSAMINE CHONDROITIN [Concomitant]
     Active Substance: CHONDROITIN SULFATE (BOVINE)\GLUCOSAMINE HYDROCHLORIDE
  13. GLUTATHIONE [Concomitant]
     Active Substance: GLUTATHIONE
  14. MIRTAZAPINE. [Concomitant]
     Active Substance: MIRTAZAPINE
  15. MORPHINE SULFATE. [Concomitant]
     Active Substance: MORPHINE SULFATE
  16. PNEUMOVAX 23 [Concomitant]
     Active Substance: PNEUMOCOCCAL VACCINE, POLYVALENT 23
  17. ANTIOXIDANT [Concomitant]
     Active Substance: UNSPECIFIED INGREDIENT
  18. GREEN TEA EXTRACT [Concomitant]
  19. VITAMIN D [Concomitant]
     Active Substance: CHOLECALCIFEROL
  20. MUSHROOM (NOS) [Concomitant]
  21. SERTRALINE HYDROCHLORIDE. [Concomitant]
     Active Substance: SERTRALINE HYDROCHLORIDE
  22. PANTOPRAZOLE SODIUM. [Concomitant]
     Active Substance: PANTOPRAZOLE SODIUM
  23. FISH OIL [Concomitant]
     Active Substance: FISH OIL

REACTIONS (5)
  - Dyspnoea [Recovering/Resolving]
  - Death [Fatal]
  - Decreased appetite [Unknown]
  - Drug dose omission [Unknown]
  - Cough [Recovering/Resolving]

NARRATIVE: CASE EVENT DATE: 201409
